FAERS Safety Report 24030273 (Version 1)
Quarter: 2024Q2

REPORT INFORMATION
  Report Type: Spontaneous
  Country: GB (occurrence: None)
  Receive Date: 20240628
  Receipt Date: 20240628
  Transmission Date: 20240716
  Serious: Yes (Hospitalization)
  Sender: FDA-Public Use
  Company Number: 2024A145383

PATIENT
  Age: 77 Year
  Sex: Female
  Weight: 65 kg

DRUGS (4)
  1. TICAGRELOR [Suspect]
     Active Substance: TICAGRELOR
     Dosage: 90MG TWICE DAILY
     Route: 048
     Dates: start: 20240507, end: 20240618
  2. ROSUVASTATIN [Concomitant]
     Active Substance: ROSUVASTATIN
  3. ASPIRIN [Concomitant]
     Active Substance: ASPIRIN
  4. ENALAPRIL [Concomitant]
     Active Substance: ENALAPRIL

REACTIONS (4)
  - Decreased appetite [Recovered/Resolved with Sequelae]
  - Dyspnoea [Unknown]
  - Nausea [Unknown]
  - Abnormal loss of weight [Unknown]

NARRATIVE: CASE EVENT DATE: 20240507
